FAERS Safety Report 17010226 (Version 1)
Quarter: 2019Q4

REPORT INFORMATION
  Report Type: Spontaneous
  Country: US (occurrence: US)
  Receive Date: 20191107
  Receipt Date: 20191107
  Transmission Date: 20200122
  Serious: Yes (Hospitalization)
  Sender: FDA-Public Use
  Company Number: None

PATIENT
  Age: 62 Year
  Sex: Male
  Weight: 157.14 kg

DRUGS (9)
  1. VITAMIN D2 [Concomitant]
     Active Substance: ERGOCALCIFEROL
  2. ONDANSETRON [Concomitant]
     Active Substance: ONDANSETRON
  3. MAGNESIUM [Concomitant]
     Active Substance: MAGNESIUM
  4. SEVELAMER [Concomitant]
     Active Substance: SEVELAMER
  5. LASIX [Concomitant]
     Active Substance: FUROSEMIDE
  6. CAPECITABINE. [Suspect]
     Active Substance: CAPECITABINE
     Indication: COLON CANCER
     Route: 048
     Dates: start: 20170118, end: 20191107
  7. AMLODIPINE [Concomitant]
     Active Substance: AMLODIPINE BESYLATE
  8. POTASSIUM [Concomitant]
     Active Substance: POTASSIUM
  9. VITAMIN B COMPLEX [Concomitant]
     Active Substance: CYANOCOBALAMIN\DEXPANTHENOL\NIACINAMIDE\PYRIDOXINE HYDROCHLORIDE\RIBOFLAVIN 5^-PHOSPHATE SODIUM\THIAMINE HYDROCHLORIDE\VITAMIN B COMPLEX

REACTIONS (2)
  - Cardiac disorder [None]
  - Abdominal discomfort [None]

NARRATIVE: CASE EVENT DATE: 20191107
